FAERS Safety Report 8759374 (Version 2)
Quarter: 2013Q2

REPORT INFORMATION
  Report Type: Spontaneous
  Country: US (occurrence: US)
  Receive Date: 20120829
  Receipt Date: 20130503
  Transmission Date: 20140414
  Serious: Yes (Death)
  Sender: FDA-Public Use
  Company Number: US-UCBSA-064343

PATIENT
  Age: 61 Year
  Sex: Female

DRUGS (2)
  1. KEPPRA XR [Suspect]
     Indication: CONVULSION
     Dosage: STRENGTH: 750 MG
  2. LIPITOR [Concomitant]
     Dosage: UNKNOWN DOSE

REACTIONS (1)
  - Death [Fatal]
